FAERS Safety Report 5863841-X (Version None)
Quarter: 2008Q3

REPORT INFORMATION
  Report Type: 
  Country: None (occurrence: None)
  Receive Date: 20080827
  Receipt Date: 20080818
  Transmission Date: 20090109
  Serious: Yes (Hospitalization)
  Sender: FDA-Public Use
  Company Number: 8036049

PATIENT
  Age: 9 Year
  Sex: Female
  Weight: 18.18 kg

DRUGS (5)
  1. KEPPRA [Suspect]
     Indication: CONVULSION
     Dosage: 250 MG 3/D PO
     Route: 048
  2. KEPPRA [Suspect]
     Indication: CONVULSION
     Dosage: 375 MG 3/D PO
     Route: 048
  3. KEPPRA [Suspect]
     Indication: CONVULSION
     Dosage: 250 MG
  4. TRILEPTAL [Concomitant]
  5. DEPAKOTE [Concomitant]

REACTIONS (2)
  - HEADACHE [None]
  - STATUS EPILEPTICUS [None]
